APPROVED DRUG PRODUCT: DICLOFENAC SODIUM AND MISOPROSTOL
Active Ingredient: DICLOFENAC SODIUM; MISOPROSTOL
Strength: 50MG;0.2MG
Dosage Form/Route: TABLET, DELAYED RELEASE;ORAL
Application: A203995 | Product #001 | TE Code: AB
Applicant: AMNEAL PHARMACEUTICALS
Approved: Nov 25, 2016 | RLD: No | RS: No | Type: RX